FAERS Safety Report 12211556 (Version 2)
Quarter: 2017Q1

REPORT INFORMATION
  Report Type: Other
  Country: FR (occurrence: FR)
  Receive Date: 20160325
  Receipt Date: 20170217
  Transmission Date: 20170428
  Serious: Yes (Hospitalization)
  Sender: FDA-Public Use
  Company Number: FR-SYMPLMED PHARMACEUTICALS-2016SYMPLMED000174

PATIENT

DRUGS (16)
  1. LASILIX                            /00032601/ [Suspect]
     Active Substance: FUROSEMIDE
     Indication: HYPERTENSION
     Dosage: 20 MG, QD
     Route: 048
     Dates: end: 20160222
  2. ALLOPURINOL. [Suspect]
     Active Substance: ALLOPURINOL
     Indication: PRODUCT USED FOR UNKNOWN INDICATION
     Dosage: 200 MG, QD
     Route: 048
     Dates: end: 20160222
  3. METFORMIN HYDROCHLORIDE. [Suspect]
     Active Substance: METFORMIN HYDROCHLORIDE
     Indication: DIABETES MELLITUS
     Dosage: 1 G, TID
     Route: 048
     Dates: end: 20160222
  4. DOCETAXEL HOSPIRA [Suspect]
     Active Substance: DOCETAXEL
     Dosage: 200 MG, UNK
     Route: 042
     Dates: start: 20160203, end: 20160203
  5. DOCETAXEL HOSPIRA [Suspect]
     Active Substance: DOCETAXEL
     Dosage: 200 MG, UNK
     Route: 042
     Dates: start: 20160113, end: 20160113
  6. AMAREL [Suspect]
     Active Substance: GLIMEPIRIDE
     Indication: DIABETES MELLITUS
     Dosage: 1 MG, QD
     Route: 048
  7. PARACETAMOL [Concomitant]
     Active Substance: ACETAMINOPHEN
     Indication: PRODUCT USED FOR UNKNOWN INDICATION
  8. DOCETAXEL HOSPIRA [Suspect]
     Active Substance: DOCETAXEL
     Indication: BREAST CANCER MALE
     Dosage: 200 MG, UNK
     Route: 042
     Dates: start: 20151202, end: 20151202
  9. LEVOTHYROX [Concomitant]
     Active Substance: LEVOTHYROXINE
     Indication: PRODUCT USED FOR UNKNOWN INDICATION
     Dosage: UNK
  10. CARDENSIEL [Concomitant]
     Active Substance: BISOPROLOL FUMARATE
     Indication: PRODUCT USED FOR UNKNOWN INDICATION
     Dosage: UNK
  11. PIVALONE                           /00803802/ [Concomitant]
     Active Substance: TIXOCORTOL PIVALATE
     Indication: PRODUCT USED FOR UNKNOWN INDICATION
  12. PREVISCAN                          /00789001/ [Concomitant]
     Active Substance: FLUINDIONE
     Indication: PRODUCT USED FOR UNKNOWN INDICATION
     Dosage: UNK
  13. TAHOR [Concomitant]
     Active Substance: ATORVASTATIN CALCIUM
     Indication: PRODUCT USED FOR UNKNOWN INDICATION
     Dosage: UNK
  14. DESLORATADINE. [Concomitant]
     Active Substance: DESLORATADINE
     Indication: PRODUCT USED FOR UNKNOWN INDICATION
  15. COVERSYL [Suspect]
     Active Substance: PERINDOPRIL
     Indication: HYPERTENSION
     Dosage: 5 MG, QD
     Route: 048
     Dates: end: 20160222
  16. DOCETAXEL HOSPIRA [Suspect]
     Active Substance: DOCETAXEL
     Dosage: 200 MG, UNK
     Route: 042
     Dates: start: 20151223, end: 20151223

REACTIONS (12)
  - Breast cancer male [Unknown]
  - Weight decreased [Unknown]
  - Thirst decreased [Unknown]
  - Ageusia [Unknown]
  - Diarrhoea [Unknown]
  - Nausea [Unknown]
  - Acute kidney injury [Recovering/Resolving]
  - Renal tubular necrosis [Recovering/Resolving]
  - Vomiting [Recovering/Resolving]
  - Haematuria [Unknown]
  - Proteinuria [Unknown]
  - Decreased appetite [Unknown]

NARRATIVE: CASE EVENT DATE: 2015
